FAERS Safety Report 7758764-5 (Version None)
Quarter: 2011Q3

REPORT INFORMATION
  Report Type: 
  Country: None (occurrence: None)
  Receive Date: 20110825
  Receipt Date: 20110613
  Transmission Date: 20111222
  Serious: Yes (Life-Threatening, Hospitalization)
  Sender: FDA-Public Use
  Company Number: 327575

PATIENT
  Age: 51 Year
  Sex: Male
  Weight: 72.6 kg

DRUGS (2)
  1. VICTOZA [Suspect]
     Indication: TYPE 2 DIABETES MELLITUS
     Dosage: 0.6 MG, QD, SUBCUTANEOUS
     Route: 058
     Dates: start: 20110424, end: 20110425
  2. VENTOLIN HFA [Concomitant]

REACTIONS (1)
  - PANCREATITIS [None]
